FAERS Safety Report 20262471 (Version 2)
Quarter: 2022Q1

REPORT INFORMATION
  Report Type: Report from Study
  Country: US (occurrence: US)
  Receive Date: 20211231
  Receipt Date: 20220203
  Transmission Date: 20220423
  Serious: Yes (Other)
  Sender: FDA-Public Use
  Company Number: US-UCBSA-2021060265

PATIENT
  Age: 32 Year
  Sex: Female

DRUGS (1)
  1. CERTOLIZUMAB PEGOL [Suspect]
     Active Substance: CERTOLIZUMAB PEGOL
     Indication: Psoriatic arthropathy
     Dosage: 400 MILLIGRAM, EV 2 WEEKS(QOW)
     Route: 058
     Dates: start: 20211216

REACTIONS (6)
  - Onychoclasis [Not Recovered/Not Resolved]
  - Nausea [Recovered/Resolved]
  - Nail ridging [Not Recovered/Not Resolved]
  - Fatigue [Not Recovered/Not Resolved]
  - Lethargy [Not Recovered/Not Resolved]
  - Therapeutic response shortened [Unknown]

NARRATIVE: CASE EVENT DATE: 20211220
